FAERS Safety Report 11949716 (Version 1)
Quarter: 2016Q1

REPORT INFORMATION
  Report Type: Spontaneous
  Country: US (occurrence: None)
  Receive Date: 20160121
  Receipt Date: 20160121
  Transmission Date: 20160526
  Serious: Yes (Life-Threatening, Hospitalization, Disabling, Other)
  Sender: FDA-Public Use
  Company Number: None

PATIENT
  Age: 43 Year

DRUGS (3)
  1. HYDROCODONE [Concomitant]
     Active Substance: HYDROCODONE
  2. MAGNEVIST [Suspect]
     Active Substance: GADOPENTETATE DIMEGLUMINE
     Indication: NUCLEAR MAGNETIC RESONANCE IMAGING BRAIN
  3. EDARBI [Concomitant]
     Active Substance: AZILSARTAN KAMEDOXOMIL

REACTIONS (21)
  - Blister [None]
  - Heart rate irregular [None]
  - Neurodegenerative disorder [None]
  - Blood cholesterol increased [None]
  - Oedema [None]
  - Seizure [None]
  - Neuropathy peripheral [None]
  - Uterine disorder [None]
  - Lymphadenopathy [None]
  - Spinal disorder [None]
  - Uterine haemorrhage [None]
  - Skin lesion [None]
  - Central nervous system lesion [None]
  - Breast cyst [None]
  - Pulmonary granuloma [None]
  - Gastric polyps [None]
  - Thyroid disorder [None]
  - Hypotension [None]
  - Muscle contractions involuntary [None]
  - Hypertension [None]
  - Internal haemorrhage [None]

NARRATIVE: CASE EVENT DATE: 20060127
